FAERS Safety Report 5088309-2 (Version None)
Quarter: 2006Q3

REPORT INFORMATION
  Report Type: 
  Country: None (occurrence: None)
  Receive Date: 20060821
  Receipt Date: 20060811
  Transmission Date: 20061208
  Serious: Yes (Other)
  Sender: FDA-Public Use
  Company Number: 2006097810

PATIENT
  Sex: Female
  Weight: 86.1834 kg

DRUGS (3)
  1. UNISOM [Suspect]
     Indication: INSOMNIA
     Dosage: 1/2 TABLET NIGHTLY, ORAL
     Route: 048
     Dates: start: 19980101
  2. ATENOLOL [Suspect]
     Indication: HYPERTENSION
     Dosage: 25 MG DAILY
  3. DYAZIDE [Concomitant]

REACTIONS (3)
  - CATARACT OPERATION [None]
  - DRY EYE [None]
  - PHOTOPHOBIA [None]
